FAERS Safety Report 7506084-6 (Version None)
Quarter: 2011Q2

REPORT INFORMATION
  Report Type: 
  Country: None (occurrence: None)
  Receive Date: 20110526
  Receipt Date: 20110523
  Transmission Date: 20111010
  Serious: No
  Sender: FDA-Public Use
  Company Number: DE-ROCHE-779025

PATIENT
  Age: 35 Year
  Sex: Female

DRUGS (2)
  1. TAMIFLU [Suspect]
     Route: 048
  2. TAMIFLU [Suspect]
     Route: 048
     Dates: start: 20110523, end: 20110523

REACTIONS (2)
  - NO ADVERSE EVENT [None]
  - OVERDOSE [None]
